FAERS Safety Report 9483193 (Version 2)
Quarter: 2013Q3

REPORT INFORMATION
  Report Type: Spontaneous
  Country: US (occurrence: US)
  Receive Date: 20130828
  Receipt Date: 20130828
  Transmission Date: 20140515
  Serious: Yes (Other)
  Sender: FDA-Public Use
  Company Number: US-AMGEN-US152413

PATIENT
  Age: 48 Year
  Sex: Female

DRUGS (2)
  1. ENBREL [Suspect]
     Indication: RHEUMATOID ARTHRITIS
     Dosage: 25 MG, 2 TIMES/WK
     Route: 058
     Dates: start: 20040501, end: 20050701
  2. METHOTREXATE [Concomitant]
     Dosage: UNK UNK, UNK
     Route: 065
     Dates: start: 20040501

REACTIONS (1)
  - Demyelinating polyneuropathy [Unknown]
